FAERS Safety Report 7929607-1 (Version None)
Quarter: 2011Q4

REPORT INFORMATION
  Report Type: 
  Country: None (occurrence: None)
  Receive Date: 20111121
  Receipt Date: 20110615
  Transmission Date: 20120403
  Serious: Yes (Other)
  Sender: FDA-Public Use
  Company Number: US-BAYER-201034860NA

PATIENT
  Age: 19 Year
  Sex: Female
  Weight: 58.957 kg

DRUGS (20)
  1. DROSPIRENONE AND ETHINYL ESTRADIOL [Suspect]
     Dosage: UNK
     Dates: start: 20080101, end: 20100101
  2. YASMIN [Suspect]
  3. MILK OF MAGNESIA TAB [Concomitant]
  4. H-2 [Concomitant]
  5. HYDROCODONE BITARTRATE AND ACETAMINOPHEN [Concomitant]
     Dosage: 7.5 MG, QID
  6. BUPROPION HYDROCHLORIDE [Concomitant]
     Dosage: 150 MG, BID
  7. BISMUTH SUBSALICYLATE [Concomitant]
  8. AMOXICILLIN [Concomitant]
  9. IBUPROFEN [Concomitant]
     Dosage: 800 MG, TID
     Route: 048
     Dates: start: 20050101, end: 20100101
  10. WELLBUTRIN [Concomitant]
  11. PROPOXYPHENE NAPSYLATE W/PARACETAMOL [Concomitant]
     Dosage: 100 MG, QID
  12. ORPHENADRINE CITRATE [Concomitant]
     Dosage: 100 MG, BID
  13. CALCIUM CARBONATE [Concomitant]
  14. PAROXETINE HCL [Concomitant]
     Dosage: 20 MG, QD
  15. METHYLPREDNISOLONE [Concomitant]
     Dosage: 4 MG, UNK
  16. PAXIL [Concomitant]
  17. YAZ [Suspect]
     Dosage: UNK
     Dates: start: 20080101, end: 20100101
  18. PROTON PUMP INHIBITORS [Concomitant]
  19. H-2 [Concomitant]
  20. POTASSIUM CHLORIDE [Concomitant]
     Dosage: 20 MEQ, QD

REACTIONS (3)
  - INJURY [None]
  - GALLBLADDER DISORDER [None]
  - CHOLELITHIASIS [None]
